FAERS Safety Report 5721292-2 (Version None)
Quarter: 2008Q2

REPORT INFORMATION
  Report Type: 
  Country: None (occurrence: None)
  Receive Date: 20080424
  Receipt Date: 20080416
  Transmission Date: 20081010
  Serious: Yes (Death, Life-Threatening, Hospitalization)
  Sender: FDA-Public Use
  Company Number: SPV1-2008-00747

PATIENT
  Age: 43 Year
  Sex: Male
  Weight: 45.4 kg

DRUGS (10)
  1. ELAPRASE [Suspect]
     Indication: MUCOPOLYSACCHARIDOSIS II
     Dosage: 0.5 MG/KG, 1X/WEEK, IV DRIP
     Route: 041
     Dates: start: 20070614, end: 20080326
  2. LORAZEPAM [Suspect]
     Dosage: 51 DF, ONE DOSE, ORAL
     Route: 048
     Dates: start: 20080328
  3. VERAPAMIL [Concomitant]
  4. FAMOTIDINE [Concomitant]
  5. ASPIRIN [Concomitant]
  6. DIGOXIN [Concomitant]
  7. TORSEMIDE [Concomitant]
  8. PIMOBENDAN (PIMOBENDAN) [Concomitant]
  9. LEVOTHYROXINE SODIUM [Concomitant]
  10. HYDROCORTISONE [Concomitant]

REACTIONS (7)
  - CARDIO-RESPIRATORY ARREST [None]
  - COMPLETED SUICIDE [None]
  - HYPOXIC ENCEPHALOPATHY [None]
  - LOSS OF CONSCIOUSNESS [None]
  - OVERDOSE [None]
  - PNEUMONIA [None]
  - RENAL FAILURE [None]
